FAERS Safety Report 4610171-X (Version None)
Quarter: 2005Q1

REPORT INFORMATION
  Report Type: 
  Country: None (occurrence: None)
  Receive Date: 20050316
  Receipt Date: 20041101
  Transmission Date: 20050727
  Serious: Yes (Death, Disabling, Other)
  Sender: FDA-Public Use
  Company Number: PHEH2004US12362

PATIENT
  Age: 52 Year
  Sex: Male
  Weight: 90 kg

DRUGS (8)
  1. LASIX [Concomitant]
  2. ZANTAC [Concomitant]
  3. CELEBREX [Concomitant]
  4. VIOXX [Concomitant]
  5. POTASSIUM CHLORIDE [Concomitant]
  6. DURAGESIC-100 [Concomitant]
  7. VICODIN [Concomitant]
  8. ZOMETA [Suspect]
     Indication: MULTIPLE MYELOMA
     Dosage: 4 MG, QMO
     Route: 042
     Dates: start: 20020103, end: 20040707

REACTIONS (5)
  - BONE DEBRIDEMENT [None]
  - CARDIAC ARREST [None]
  - MASTICATION DISORDER [None]
  - OSTEONECROSIS [None]
  - PAIN [None]
